FAERS Safety Report 8439871-0 (Version None)
Quarter: 2012Q2

REPORT INFORMATION
  Report Type: 
  Country: None (occurrence: None)
  Receive Date: 20120615
  Receipt Date: 20120612
  Transmission Date: 20120825
  Serious: Yes (Other)
  Sender: FDA-Public Use
  Company Number: PHHY2011AR91299

PATIENT
  Sex: Female

DRUGS (10)
  1. CETRILER [Concomitant]
  2. TASIGNA [Suspect]
     Dosage: 400 MG, DAILY
     Route: 048
     Dates: start: 20110801
  3. DEXAMETHASONE [Concomitant]
     Dates: end: 20110901
  4. TASIGNA [Suspect]
     Dosage: 800 MG DAILY
     Dates: start: 20110801
  5. TASIGNA [Suspect]
     Dosage: 600 MG, DAILY
     Route: 048
     Dates: start: 20110801
  6. TASIGNA [Suspect]
     Dosage: 800 MG, DAILY
     Route: 048
     Dates: start: 20120103
  7. CORTICOSTEROIDS [Concomitant]
     Dates: start: 20110401
  8. TASIGNA [Suspect]
     Indication: CHRONIC MYELOID LEUKAEMIA
     Dosage: 800 MG, DAILY
     Route: 048
     Dates: start: 20110801
  9. TASIGNA [Suspect]
     Dosage: 600 MG, ON ONE DAY
     Route: 048
  10. TASIGNA [Suspect]
     Dosage: 800 MG, DAILY
     Route: 048

REACTIONS (16)
  - PAIN [None]
  - HAIR TEXTURE ABNORMAL [None]
  - BLOOD TRIGLYCERIDES INCREASED [None]
  - BLISTER [None]
  - CHOLELITHIASIS [None]
  - MENORRHAGIA [None]
  - ANAEMIA [None]
  - AGITATION [None]
  - PYREXIA [None]
  - DYSPEPSIA [None]
  - HYPERCHLORHYDRIA [None]
  - PRURITUS [None]
  - FATIGUE [None]
  - RENAL DISORDER [None]
  - DERMATITIS ALLERGIC [None]
  - JOINT SWELLING [None]
